FAERS Safety Report 7933885-2 (Version None)
Quarter: 2011Q4

REPORT INFORMATION
  Report Type: 
  Country: None (occurrence: None)
  Receive Date: 20111118
  Receipt Date: 20111108
  Transmission Date: 20120403
  Serious: Yes (Hospitalization)
  Sender: FDA-Public Use
  Company Number: TCI2011A05987

PATIENT
  Age: 86 Year
  Sex: Female

DRUGS (2)
  1. GLYBURIDE [Suspect]
     Indication: DIABETES MELLITUS
     Dosage: PER ORAL
     Route: 048
  2. ACTOS [Suspect]
     Indication: DIABETES MELLITUS
     Dosage: 30 MG (30 MG, 1 - 2), PER ORAL
     Route: 048

REACTIONS (7)
  - HYPOGLYCAEMIC ENCEPHALOPATHY [None]
  - OEDEMA PERIPHERAL [None]
  - ANAEMIA [None]
  - DIARRHOEA [None]
  - OCULAR ICTERUS [None]
  - DECREASED APPETITE [None]
  - PYREXIA [None]
